FAERS Safety Report 7898827-7 (Version None)
Quarter: 2011Q4

REPORT INFORMATION
  Report Type: 
  Country: None (occurrence: None)
  Receive Date: 20111104
  Receipt Date: 20111031
  Transmission Date: 20120403
  Serious: Yes (Hospitalization, Other)
  Sender: FDA-Public Use
  Company Number: AUR-APL-2011-05656

PATIENT
  Age: 9 Year
  Sex: Female

DRUGS (7)
  1. AMLODIPINE [Suspect]
     Indication: HYPERTENSION
     Dosage: (7.5 MG, 1 D), ORAL, (12.5 MG, 1D)
     Route: 048
  2. EPOETIN-ALPHA (EPOETIN ALFA) [Suspect]
     Indication: PRODUCT USED FOR UNKNOWN INDICATION
  3. CALCITRIOL [Concomitant]
  4. ATORVASTATIN [Concomitant]
  5. AZATHIOPRINE [Concomitant]
  6. LABETALOL HCL [Concomitant]
  7. BUDESONIDE [Concomitant]

REACTIONS (2)
  - GINGIVAL HYPERPLASIA [None]
  - EATING DISORDER [None]
